FAERS Safety Report 18050727 (Version 1)
Quarter: 2020Q3

REPORT INFORMATION
  Report Type: Spontaneous
  Country: IT (occurrence: IT)
  Receive Date: 20200721
  Receipt Date: 20200721
  Transmission Date: 20201103
  Serious: Yes (Hospitalization, Other)
  Sender: FDA-Public Use
  Company Number: IT-SA-2020SA188444

PATIENT

DRUGS (3)
  1. RIFADIN [Suspect]
     Active Substance: RIFAMPIN
     Indication: TUBERCULOSIS
     Dosage: 600 MG, QD
     Route: 048
     Dates: start: 20191030, end: 20200204
  2. RIFADIN [Suspect]
     Active Substance: RIFAMPIN
     Dosage: 300 MG, QD
     Dates: start: 20200205, end: 20200623
  3. RIFADIN [Suspect]
     Active Substance: RIFAMPIN
     Dosage: 450 MG, QD
     Route: 048
     Dates: start: 20200205, end: 20200623

REACTIONS (3)
  - Haematoma [Recovered/Resolved]
  - Thrombocytopenia [Recovered/Resolved]
  - Petechiae [Recovered/Resolved]

NARRATIVE: CASE EVENT DATE: 20200623
